FAERS Safety Report 4771879-9 (Version None)
Quarter: 2005Q3

REPORT INFORMATION
  Report Type: 
  Country: None (occurrence: None)
  Receive Date: 20050916
  Receipt Date: 20050908
  Transmission Date: 20060218
  Serious: Yes (Life-Threatening, Hospitalization)
  Sender: FDA-Public Use
  Company Number: DE-SANOFI-SYNTHELABO-A01200506090

PATIENT
  Age: 39 Year
  Sex: Female

DRUGS (2)
  1. BIKALM [Suspect]
     Indication: DRUG USE FOR UNKNOWN INDICATION
     Route: 048
     Dates: start: 20050101, end: 20050905
  2. BIKALM [Suspect]
     Dosage: IN ADDITION, AS AN EXCEPTION, THE TOOK  A DAILY DOSE OF 80 TABLETS
     Route: 048

REACTIONS (4)
  - CARDIAC ARREST [None]
  - CONDUCTION DISORDER [None]
  - INTENTIONAL MISUSE [None]
  - OVERDOSE [None]
